FAERS Safety Report 7000902-6 (Version None)
Quarter: 2010Q3

REPORT INFORMATION
  Report Type: 
  Country: None (occurrence: None)
  Receive Date: 20100920
  Receipt Date: 20100909
  Transmission Date: 20110219
  Serious: Yes (Other)
  Sender: FDA-Public Use
  Company Number: PHHY2010IE61377

PATIENT
  Sex: Female

DRUGS (4)
  1. SANDOSTATIN LAR [Suspect]
     Indication: DIARRHOEA
     Dosage: 20 MG
     Dates: start: 20100401
  2. SANDOSTATIN LAR [Suspect]
     Dosage: 20 MG
     Dates: start: 20100501
  3. SANDOSTATIN LAR [Suspect]
     Dosage: 20 MG
     Dates: start: 20100601
  4. SANDOSTATIN [Suspect]
     Indication: DIARRHOEA
     Dosage: 1500 MCG/DAY
     Route: 058

REACTIONS (1)
  - PANCREATICODUODENECTOMY [None]
